FAERS Safety Report 16384089 (Version 1)
Quarter: 2019Q2

REPORT INFORMATION
  Report Type: Spontaneous
  Country: US (occurrence: US)
  Receive Date: 20190603
  Receipt Date: 20190603
  Transmission Date: 20190711
  Serious: No
  Sender: FDA-Public Use
  Company Number: US-GLAXOSMITHKLINE-US2019AMR083713

PATIENT
  Age: 82 Year
  Sex: Male

DRUGS (1)
  1. ALBUTEROL SULFATE INHALATION POWDER [Suspect]
     Active Substance: ALBUTEROL SULFATE
     Indication: PNEUMONIA
     Dosage: UNK
     Route: 055
     Dates: start: 20190508

REACTIONS (3)
  - Device issue [Unknown]
  - Product dose omission [Unknown]
  - Product complaint [Unknown]
